FAERS Safety Report 7463610-3 (Version None)
Quarter: 2011Q1

REPORT INFORMATION
  Report Type: 
  Country: None (occurrence: None)
  Receive Date: 20110302
  Receipt Date: 20100920
  Transmission Date: 20110831
  Serious: Yes (Hospitalization, Other)
  Sender: FDA-Public Use
  Company Number: 163-21880-10081594

PATIENT
  Age: 62 Year
  Sex: Male

DRUGS (3)
  1. REVLIMID [Suspect]
     Dosage: 5 MG, DAILY X 1-21 DAYS, PO, 15 MG, Q48HRS, PO
     Route: 048
     Dates: start: 20100712
  2. REVLIMID [Suspect]
     Dosage: 5 MG, DAILY X 1-21 DAYS, PO, 15 MG, Q48HRS, PO
     Route: 048
     Dates: start: 20100901
  3. DEXAMETHASONE [Concomitant]

REACTIONS (2)
  - OBSTRUCTIVE UROPATHY [None]
  - URINARY TRACT INFECTION [None]
